FAERS Safety Report 7953247-1 (Version None)
Quarter: 2011Q4

REPORT INFORMATION
  Report Type: 
  Country: None (occurrence: None)
  Receive Date: 20111201
  Receipt Date: 20111125
  Transmission Date: 20120403
  Serious: Yes (Hospitalization)
  Sender: FDA-Public Use
  Company Number: FR-GILEAD-2011-0047272

PATIENT
  Sex: Male

DRUGS (4)
  1. REYATAZ [Suspect]
     Indication: HIV INFECTION CDC CATEGORY A3
     Dosage: 1 DF, QD
     Route: 048
     Dates: start: 20091228
  2. NORVIR [Suspect]
     Indication: HIV INFECTION CDC CATEGORY A3
     Dosage: 1 DF, QD
     Route: 048
     Dates: start: 20091228
  3. SEPTEAL [Concomitant]
     Dosage: 2 DF, QD
     Route: 061
     Dates: start: 20100308
  4. TRUVADA [Suspect]
     Indication: HIV INFECTION CDC CATEGORY A3
     Dosage: 1 DF, QD
     Route: 048
     Dates: start: 20060105

REACTIONS (1)
  - RENAL COLIC [None]
